FAERS Safety Report 23811060 (Version 1)
Quarter: 2024Q2

REPORT INFORMATION
  Report Type: Spontaneous
  Country: IT (occurrence: IT)
  Receive Date: 20240502
  Receipt Date: 20240502
  Transmission Date: 20240715
  Serious: Yes (Other)
  Sender: FDA-Public Use
  Company Number: None

PATIENT
  Age: 78 Year
  Sex: Male
  Weight: 90 kg

DRUGS (2)
  1. RANEXA [Suspect]
     Active Substance: RANOLAZINE
     Indication: Angina pectoris
     Dosage: 2 DF, QD
     Route: 048
     Dates: start: 20240411, end: 20240416
  2. RANEXA [Suspect]
     Active Substance: RANOLAZINE
     Indication: Coronary artery occlusion

REACTIONS (11)
  - Abdominal pain upper [Not Recovered/Not Resolved]
  - Insomnia [Recovering/Resolving]
  - Dizziness [Not Recovered/Not Resolved]
  - Confusional state [Recovering/Resolving]
  - Fatigue [Not Recovered/Not Resolved]
  - Dyspepsia [Not Recovered/Not Resolved]
  - Dysuria [Not Recovered/Not Resolved]
  - Abdominal pain [Not Recovered/Not Resolved]
  - Hallucination [Recovering/Resolving]
  - Hyperhidrosis [Not Recovered/Not Resolved]
  - Anxiety [Recovering/Resolving]

NARRATIVE: CASE EVENT DATE: 20240411
